FAERS Safety Report 21972014 (Version 2)
Quarter: 2023Q1

REPORT INFORMATION
  Report Type: Spontaneous
  Country: US (occurrence: US)
  Receive Date: 20230209
  Receipt Date: 20230222
  Transmission Date: 20230417
  Serious: No
  Sender: FDA-Public Use
  Company Number: US-AMGEN-USASP2023021461

PATIENT
  Sex: Female

DRUGS (1)
  1. PROLIA [Suspect]
     Active Substance: DENOSUMAB
     Indication: Osteoporosis
     Dosage: UNK
     Route: 065

REACTIONS (7)
  - Blood calcium abnormal [Unknown]
  - Pain in jaw [Unknown]
  - Blepharospasm [Unknown]
  - Vertigo [Unknown]
  - Back pain [Unknown]
  - Arthralgia [Unknown]
  - Bone pain [Unknown]
